FAERS Safety Report 14299907 (Version 1)
Quarter: 2017Q4

REPORT INFORMATION
  Report Type: Other
  Country: BE (occurrence: BE)
  Receive Date: 20171219
  Receipt Date: 20171219
  Transmission Date: 20180321
  Serious: Yes (Death, Other)
  Sender: FDA-Public Use
  Company Number: BE-APOTEX-2017AP022600

PATIENT
  Age: 27 Year
  Sex: Female

DRUGS (9)
  1. CYCLOPHOSPHAMIDE. [Suspect]
     Active Substance: CYCLOPHOSPHAMIDE
     Indication: BONE MARROW CONDITIONING REGIMEN
     Route: 041
  2. TACROLIMUS. [Suspect]
     Active Substance: TACROLIMUS
     Indication: PROPHYLAXIS AGAINST GRAFT VERSUS HOST DISEASE
     Route: 065
  3. ANTI-HUMAN T-LYMPHOCYTE IMMUNOGLOBULIN FROM RABBITS [Suspect]
     Active Substance: LAPINE T-LYMPHOCYTE IMMUNE GLOBULIN
     Indication: BONE MARROW CONDITIONING REGIMEN
     Route: 065
  4. POSACONAZOLE [Concomitant]
     Active Substance: POSACONAZOLE
     Indication: PRODUCT USED FOR UNKNOWN INDICATION
     Route: 065
  5. MYCOPHENOLATE [Suspect]
     Active Substance: MYCOPHENOLIC ACID
     Indication: PROPHYLAXIS AGAINST GRAFT VERSUS HOST DISEASE
     Route: 065
  6. FOSCAVIR [Concomitant]
     Active Substance: FOSCARNET SODIUM
     Indication: PRODUCT USED FOR UNKNOWN INDICATION
     Route: 065
  7. FLUDARABINE PHOSPHATE. [Suspect]
     Active Substance: FLUDARABINE PHOSPHATE
     Indication: BONE MARROW CONDITIONING REGIMEN
     Route: 065
  8. BUSULFAN. [Suspect]
     Active Substance: BUSULFAN
     Indication: BONE MARROW CONDITIONING REGIMEN
     Route: 065
  9. VALGANCICLOVIR HYDROCHLORIDE. [Suspect]
     Active Substance: VALGANCICLOVIR HYDROCHLORIDE
     Indication: CYTOMEGALOVIRUS INFECTION
     Route: 065

REACTIONS (18)
  - Cholestasis [Fatal]
  - Hepatic necrosis [Fatal]
  - Hepatocellular injury [Fatal]
  - Disseminated intravascular coagulation [Fatal]
  - Adenoviral hepatitis [Fatal]
  - Diarrhoea [Fatal]
  - Rash [Fatal]
  - Cytomegalovirus infection [Fatal]
  - Hepatomegaly [Fatal]
  - Hepatic failure [Fatal]
  - Oral candidiasis [Fatal]
  - Venoocclusive liver disease [Fatal]
  - Staphylococcal sepsis [Fatal]
  - Hepatic pain [Fatal]
  - Ascites [Fatal]
  - Pancytopenia [Fatal]
  - Pyrexia [Fatal]
  - Oedema [Fatal]
